FAERS Safety Report 5127857-3 (Version None)
Quarter: 2006Q4

REPORT INFORMATION
  Report Type: 
  Country: None (occurrence: None)
  Receive Date: 20061016
  Receipt Date: 20061006
  Transmission Date: 20070319
  Serious: Yes (Death, Hospitalization)
  Sender: FDA-Public Use
  Company Number: ZA-BRISTOL-MYERS SQUIBB COMPANY-13535042

PATIENT
  Age: 36 Year
  Sex: Female
  Weight: 130 kg

DRUGS (5)
  1. STAVUDINE [Suspect]
     Indication: HIV INFECTION
  2. EFAVIRENZ [Suspect]
     Indication: HIV INFECTION
  3. LAMIVUDINE [Suspect]
     Indication: HIV INFECTION
  4. CO-TRIMOXAZOLE [Concomitant]
  5. VITAMINS [Concomitant]

REACTIONS (1)
  - LACTIC ACIDOSIS [None]
